FAERS Safety Report 23859852 (Version 1)
Quarter: 2024Q2

REPORT INFORMATION
  Report Type: Report from Study
  Country: US (occurrence: US)
  Receive Date: 20240515
  Receipt Date: 20240515
  Transmission Date: 20240715
  Serious: Yes (Death)
  Sender: FDA-Public Use
  Company Number: US-TAIHOP-2024-004898

PATIENT
  Sex: Female
  Weight: 86.18 kg

DRUGS (1)
  1. LONSURF [Suspect]
     Active Substance: TIPIRACIL HYDROCHLORIDE\TRIFLURIDINE
     Indication: Hepatic cancer stage IV
     Dosage: FORM STRENGTH 15MG AND 20 MG; CYCLE UNKNOWN
     Route: 048
     Dates: start: 20240319

REACTIONS (2)
  - Death [Fatal]
  - Off label use [Unknown]
